FAERS Safety Report 17926313 (Version 1)
Quarter: 2020Q2

REPORT INFORMATION
  Report Type: Spontaneous
  Country: TR (occurrence: TR)
  Receive Date: 20200623
  Receipt Date: 20200623
  Transmission Date: 20200714
  Serious: Yes (Death)
  Sender: FDA-Public Use
  Company Number: TR-INCYTE CORPORATION-2020IN005855

PATIENT

DRUGS (1)
  1. JAKAVI [Suspect]
     Active Substance: RUXOLITINIB
     Indication: MYELOFIBROSIS
     Dosage: UNK
     Route: 065

REACTIONS (9)
  - Confusional state [Fatal]
  - Pyrexia [Fatal]
  - Mycobacterium tuberculosis complex test positive [Unknown]
  - Intracranial mass [Fatal]
  - General physical health deterioration [Fatal]
  - Aphasia [Fatal]
  - Hyponatraemia [Fatal]
  - Adenosine deaminase increased [Fatal]
  - Metastases to meninges [Fatal]
